FAERS Safety Report 9874855 (Version 3)
Quarter: 2014Q1

REPORT INFORMATION
  Report Type: Report from Study
  Country: IT (occurrence: IT)
  Receive Date: 20140206
  Receipt Date: 20140321
  Transmission Date: 20141002
  Serious: Yes (Life-Threatening)
  Sender: FDA-Public Use
  Company Number: PHHY2014IT013642

PATIENT
  Age: 9 Year
  Sex: Female

DRUGS (3)
  1. CERTICAN [Suspect]
     Indication: IMMUNOSUPPRESSION
     Dosage: 1 MG, PER DAY
     Route: 048
     Dates: start: 20071001
  2. CERTICAN [Suspect]
     Indication: PROPHYLAXIS AGAINST TRANSPLANT REJECTION
  3. INOTROPIN [Concomitant]

REACTIONS (3)
  - Cardiac failure chronic [Recovered/Resolved]
  - Transplant failure [Recovered/Resolved]
  - Angiopathy [Unknown]
